FAERS Safety Report 7011840-7 (Version None)
Quarter: 2010Q3

REPORT INFORMATION
  Report Type: 
  Country: None (occurrence: None)
  Receive Date: 20100923
  Receipt Date: 20090910
  Transmission Date: 20110219
  Serious: No
  Sender: FDA-Public Use
  Company Number: US-WYE-H10952109

PATIENT
  Sex: Female

DRUGS (1)
  1. PREMARIN [Suspect]
     Dosage: ^A FINGER FULL^
     Route: 067

REACTIONS (2)
  - PRODUCT QUALITY ISSUE [None]
  - VULVOVAGINAL BURNING SENSATION [None]
